FAERS Safety Report 7132682-8 (Version None)
Quarter: 2010Q4

REPORT INFORMATION
  Report Type: 
  Country: None (occurrence: None)
  Receive Date: 20101130
  Receipt Date: 20101130
  Transmission Date: 20110411
  Serious: Yes (Hospitalization)
  Sender: FDA-Public Use
  Company Number: None

PATIENT
  Age: 87 Year
  Sex: Male
  Weight: 67 kg

DRUGS (2)
  1. AMITRIPTYLINE HCL [Suspect]
     Indication: NEUROPATHY PERIPHERAL
     Dosage: 10 MG HS PO
     Route: 048
     Dates: start: 20100923, end: 20101006
  2. AMITRIPTYLINE HCL [Suspect]
     Indication: PAIN
     Dosage: 10 MG HS PO
     Route: 048
     Dates: start: 20100923, end: 20101006

REACTIONS (1)
  - SYNCOPE [None]
